FAERS Safety Report 6369874-1 (Version None)
Quarter: 2009Q3

REPORT INFORMATION
  Report Type: 
  Country: None (occurrence: None)
  Receive Date: 20090923
  Receipt Date: 20070510
  Transmission Date: 20100115
  Serious: No
  Sender: FDA-Public Use
  Company Number: US-ASTRAZENECA-2006UW11558

PATIENT
  Age: 51 Year
  Sex: Female
  Weight: 87.5 kg

DRUGS (4)
  1. SEROQUEL [Suspect]
     Indication: BIPOLAR DISORDER
     Route: 048
     Dates: start: 20040101, end: 20050101
  2. SEROQUEL [Suspect]
     Route: 048
     Dates: start: 20050512
  3. ZYPREXA [Suspect]
     Route: 048
     Dates: start: 20000829
  4. ABILIFY [Concomitant]

REACTIONS (3)
  - ABDOMINAL DISCOMFORT [None]
  - CHEST PAIN [None]
  - DIABETES MELLITUS [None]
